FAERS Safety Report 25414034 (Version 2)
Quarter: 2025Q2

REPORT INFORMATION
  Report Type: Spontaneous
  Country: IN (occurrence: IN)
  Receive Date: 20250609
  Receipt Date: 20250624
  Transmission Date: 20250716
  Serious: Yes (Hospitalization)
  Sender: AMGEN
  Company Number: IN-AMGEN-INDSP2025109644

PATIENT
  Sex: Female

DRUGS (1)
  1. ROMIPLOSTIM [Suspect]
     Active Substance: ROMIPLOSTIM
     Indication: Exposure during pregnancy
     Route: 064

REACTIONS (2)
  - Foetal growth restriction [Unknown]
  - Low birth weight baby [Unknown]
